FAERS Safety Report 8977014 (Version 1)
Quarter: 2012Q4

REPORT INFORMATION
  Report Type: 
  Country: US (occurrence: US)
  Receive Date: 20121220
  Receipt Date: 20121220
  Transmission Date: 20130627
  Serious: No
  Sender: FDA-Public Use
  Company Number: US-GLAXOSMITHKLINE-A0994188A

PATIENT
  Age: 61 Year
  Sex: Female

DRUGS (4)
  1. SORIATANE [Suspect]
     Indication: PSORIASIS
     Dosage: 25MG Per day
     Route: 048
     Dates: start: 20120822, end: 20120831
  2. MAXIDE [Concomitant]
  3. RAMIPRIL [Concomitant]
  4. ALCOHOL [Concomitant]

REACTIONS (1)
  - Drug administration error [Recovered/Resolved]
